FAERS Safety Report 9857319 (Version 2)
Quarter: 2014Q1

REPORT INFORMATION
  Report Type: Spontaneous
  Country: DE (occurrence: DE)
  Receive Date: 20140130
  Receipt Date: 20140130
  Transmission Date: 20141002
  Serious: Yes (Other)
  Sender: FDA-Public Use
  Company Number: PHHY2013DE142959

PATIENT
  Sex: Male

DRUGS (2)
  1. RASILEZ [Suspect]
     Indication: HYPERTENSION
     Dosage: UNK UKN, UNK
     Dates: end: 2013
  2. RASILEZ [Suspect]
     Dosage: UNK UKN, UNK
     Dates: start: 2013

REACTIONS (2)
  - Blood pressure systolic increased [Recovering/Resolving]
  - Rebound effect [Unknown]
